FAERS Safety Report 12423002 (Version 1)
Quarter: 2016Q2

REPORT INFORMATION
  Report Type: Spontaneous
  Country: US (occurrence: None)
  Receive Date: 20160531
  Receipt Date: 20160531
  Transmission Date: 20160815
  Serious: No
  Sender: FDA-Public Use
  Company Number: None

PATIENT
  Age: 21 Year
  Sex: Female
  Weight: 72.58 kg

DRUGS (4)
  1. MIRENA [Suspect]
     Active Substance: LEVONORGESTREL
     Indication: CONTRACEPTION
     Dosage: 1 IUD IN UTERINE VAGINAL
     Route: 067
     Dates: start: 20120229
  2. FIBER SUPPLEMENT [Concomitant]
  3. DAILY VITAMIN [Concomitant]
     Active Substance: VITAMINS
  4. MIRALAX [Concomitant]
     Active Substance: POLYETHYLENE GLYCOL 3350

REACTIONS (12)
  - Back pain [None]
  - Abdominal distension [None]
  - Pelvic pain [None]
  - Depression [None]
  - Migraine [None]
  - Acne [None]
  - Weight increased [None]
  - Wrong technique in product usage process [None]
  - Menorrhagia [None]
  - Dyspareunia [None]
  - Menstruation irregular [None]
  - Mood swings [None]

NARRATIVE: CASE EVENT DATE: 20160526
